FAERS Safety Report 20619300 (Version 1)
Quarter: 2022Q1

REPORT INFORMATION
  Report Type: Report from Study
  Country: CO (occurrence: CO)
  Receive Date: 20220322
  Receipt Date: 20220322
  Transmission Date: 20220423
  Serious: Yes (Other)
  Sender: FDA-Public Use
  Company Number: CO-TAKEDA-CO202026625

PATIENT
  Age: 23 Year
  Sex: Male
  Weight: 43 kg

DRUGS (5)
  1. HUMAN IMMUNOGLOBULIN G\HYALURONIDASE RECOMBINANT HUMAN [Suspect]
     Active Substance: HUMAN IMMUNOGLOBULIN G\HYALURONIDASE RECOMBINANT HUMAN
     Indication: Primary immunodeficiency syndrome
     Dosage: 100 MILLIGRAM PER MILLILITRE
     Route: 065
     Dates: start: 20200402
  2. HUMAN IMMUNOGLOBULIN G\HYALURONIDASE RECOMBINANT HUMAN [Suspect]
     Active Substance: HUMAN IMMUNOGLOBULIN G\HYALURONIDASE RECOMBINANT HUMAN
     Dosage: 20 GRAM, Q2WEEKS
     Route: 058
     Dates: start: 20200402
  3. HEROIN [Concomitant]
     Active Substance: DIAMORPHINE
  4. MORPHINE [Concomitant]
     Active Substance: MORPHINE
  5. OXYCODONE [Concomitant]
     Active Substance: OXYCODONE

REACTIONS (12)
  - Suicidal ideation [Unknown]
  - Skin lesion [Recovering/Resolving]
  - Oropharyngeal pain [Recovering/Resolving]
  - Feeling abnormal [Unknown]
  - Poor quality sleep [Unknown]
  - Nightmare [Unknown]
  - Decreased appetite [Unknown]
  - Body temperature increased [Recovering/Resolving]
  - Discomfort [Recovering/Resolving]
  - Malaise [Recovering/Resolving]
  - Headache [Recovering/Resolving]
  - Cough [Recovering/Resolving]

NARRATIVE: CASE EVENT DATE: 20200808
